FAERS Safety Report 6924397-3 (Version None)
Quarter: 2010Q3

REPORT INFORMATION
  Report Type: 
  Country: None (occurrence: None)
  Receive Date: 20100804
  Receipt Date: 20100720
  Transmission Date: 20110219
  Serious: Yes (Hospitalization)
  Sender: FDA-Public Use
  Company Number: WIL-012-10-US

PATIENT
  Sex: Male

DRUGS (1)
  1. WILATE [Suspect]
     Indication: FACTOR VIII DEFICIENCY

REACTIONS (3)
  - DRUG DOSE OMISSION [None]
  - DRUG INEFFECTIVE [None]
  - RENAL HAEMORRHAGE [None]
